FAERS Safety Report 7880753-0 (Version None)
Quarter: 2011Q4

REPORT INFORMATION
  Report Type: 
  Country: None (occurrence: None)
  Receive Date: 20111101
  Receipt Date: 20111101
  Transmission Date: 20120403
  Serious: No
  Sender: FDA-Public Use
  Company Number: US-B.I. PHARMACEUTICALS,INC./RIDGEFIELD-2011-BP-03093BP

PATIENT
  Age: 56 Year
  Sex: Male
  Weight: 133.36 kg

DRUGS (6)
  1. CRESTOR [Concomitant]
     Dosage: 10 MG
  2. JANUMET [Concomitant]
     Dosage: 100 MG
  3. AMIODARONE HCL [Concomitant]
     Dosage: 200 MG
  4. PRADAXA [Suspect]
     Indication: ATRIAL FIBRILLATION
     Dosage: 300 MG
     Dates: start: 20110101
  5. EXFORGE [Concomitant]
  6. COREG CR [Concomitant]
     Dosage: 20 MG

REACTIONS (2)
  - WEIGHT INCREASED [None]
  - GENERALISED OEDEMA [None]
